FAERS Safety Report 5038546-8 (Version None)
Quarter: 2006Q2

REPORT INFORMATION
  Report Type: 
  Country: None (occurrence: None)
  Receive Date: 20060601
  Receipt Date: 20060126
  Transmission Date: 20061013
  Serious: No
  Sender: FDA-Public Use
  Company Number: 2006PV007696

PATIENT
  Age: 51 Year
  Sex: Male
  Weight: 145.151 kg

DRUGS (1)
  1. BYETTA [Suspect]
     Indication: DIABETES MELLITUS NON-INSULIN-DEPENDENT
     Dosage: 5 MCG;BID;SC
     Route: 058
     Dates: start: 20060126

REACTIONS (5)
  - ASTHENIA [None]
  - DYSGEUSIA [None]
  - ERUCTATION [None]
  - NAUSEA [None]
  - PARAESTHESIA [None]
